FAERS Safety Report 9144940 (Version 2)
Quarter: 2013Q2

REPORT INFORMATION
  Report Type: Spontaneous
  Country: US (occurrence: US)
  Receive Date: 20130307
  Receipt Date: 20130401
  Transmission Date: 20140414
  Serious: Yes (Hospitalization)
  Sender: FDA-Public Use
  Company Number: US-BIOGENIDEC-2013BI020657

PATIENT
  Age: 56 Year
  Sex: Female

DRUGS (1)
  1. TYSABRI [Suspect]
     Indication: MULTIPLE SCLEROSIS
     Route: 042
     Dates: start: 20100305

REACTIONS (6)
  - Lower limb fracture [Unknown]
  - Balance disorder [Not Recovered/Not Resolved]
  - Cellulitis [Unknown]
  - Fall [Recovered/Resolved]
  - Muscle spasms [Unknown]
  - Muscular weakness [Unknown]
